FAERS Safety Report 16025625 (Version 6)
Quarter: 2021Q1

REPORT INFORMATION
  Report Type: Spontaneous
  Country: JP (occurrence: JP)
  Receive Date: 20190302
  Receipt Date: 20210318
  Transmission Date: 20210419
  Serious: Yes (Hospitalization, Other)
  Sender: FDA-Public Use
  Company Number: JP-UNITED THERAPEUTICS-UNT-2017-018367

PATIENT
  Age: 36 Year
  Sex: Female
  Weight: 47.6 kg

DRUGS (14)
  1. REMODULIN [Suspect]
     Active Substance: TREPROSTINIL
     Dosage: 0.042 ?G/KG, CONTINUING
     Route: 058
     Dates: start: 201712
  2. PARIET [Concomitant]
     Active Substance: RABEPRAZOLE SODIUM
     Indication: PROPHYLAXIS
     Dosage: UNK
     Route: 048
  3. REMODULIN [Suspect]
     Active Substance: TREPROSTINIL
     Dosage: 0.045 ?G/KG, CONTINUING
     Route: 058
     Dates: start: 201712
  4. OPSUMIT [Concomitant]
     Active Substance: MACITENTAN
     Indication: PULMONARY ARTERIAL HYPERTENSION
     Dosage: UNK
     Route: 048
     Dates: start: 201608
  5. MERCAZOLE [Concomitant]
     Active Substance: CARBIMAZOLE
     Indication: PRODUCT USED FOR UNKNOWN INDICATION
     Dosage: UNK
     Route: 048
  6. REMODULIN [Suspect]
     Active Substance: TREPROSTINIL
     Dosage: 0.102 ?G/KG, CONTINUING
     Route: 041
     Dates: start: 2019, end: 20190228
  7. REVATIO [Concomitant]
     Active Substance: SILDENAFIL CITRATE
     Indication: PULMONARY ARTERIAL HYPERTENSION
     Dosage: UNK
     Route: 048
  8. LASIX [Concomitant]
     Active Substance: FUROSEMIDE
     Indication: PULMONARY ARTERIAL HYPERTENSION
     Dosage: UNK
     Route: 048
  9. REMODULIN [Suspect]
     Active Substance: TREPROSTINIL
     Dosage: 0.03 ?G/KG, CONTINUING
     Route: 058
     Dates: start: 201712
  10. REMODULIN [Suspect]
     Active Substance: TREPROSTINIL
     Indication: PULMONARY ARTERIAL HYPERTENSION
     Dosage: 0.015 ?G/KG, CONTINUING
     Route: 058
     Dates: start: 20171204
  11. REMODULIN [Suspect]
     Active Substance: TREPROSTINIL
     Dosage: 0.06 ?G/KG, CONTINUING
     Route: 058
     Dates: start: 201712
  12. REMODULIN [Suspect]
     Active Substance: TREPROSTINIL
     Dosage: 0.108 ?G/KG, CONTINUING
     Route: 058
     Dates: end: 201901
  13. REMODULIN [Suspect]
     Active Substance: TREPROSTINIL
     Indication: PULMONARY ARTERIAL HYPERTENSION
     Dosage: (95.5 NG/KG/MIN) BY 4 STEPS (BY ONE?QUARTER, 4 DAYS), CONTINUING
     Route: 041
     Dates: start: 20190110
  14. REMODULIN [Suspect]
     Active Substance: TREPROSTINIL
     Dosage: 0.078 ?G/KG, CONTINUING
     Route: 058
     Dates: start: 201712

REACTIONS (10)
  - Influenza [Recovered/Resolved]
  - Injection site pain [Recovered/Resolved]
  - Vascular device infection [Recovered/Resolved]
  - Catheter site extravasation [Recovered/Resolved]
  - Physical deconditioning [Recovered/Resolved]
  - Device related sepsis [Recovered/Resolved]
  - Infection [Recovered/Resolved]
  - Injection site induration [Recovered/Resolved]
  - Injection site infection [Unknown]
  - Pain in extremity [Not Recovered/Not Resolved]

NARRATIVE: CASE EVENT DATE: 201712
